FAERS Safety Report 19286918 (Version 1)
Quarter: 2021Q2

REPORT INFORMATION
  Report Type: Spontaneous
  Country: US (occurrence: US)
  Receive Date: 20210521
  Receipt Date: 20210521
  Transmission Date: 20210717
  Serious: No
  Sender: FDA-Public Use
  Company Number: US-RADIUS HEALTH INC.-2018US003060

PATIENT
  Age: 76 Year
  Sex: Female

DRUGS (1)
  1. TYMLOS [Suspect]
     Active Substance: ABALOPARATIDE
     Indication: OSTEOPOROSIS POSTMENOPAUSAL
     Dosage: 80 MCG, ONCE A DAY
     Route: 058
     Dates: start: 20181126

REACTIONS (8)
  - Off label use [Unknown]
  - Spinal pain [Recovering/Resolving]
  - Blood calcium increased [Unknown]
  - Palpitations [Recovering/Resolving]
  - Dizziness [Recovering/Resolving]
  - Back pain [Recovering/Resolving]
  - Headache [Recovered/Resolved]
  - Heart rate increased [Recovering/Resolving]

NARRATIVE: CASE EVENT DATE: 20181126
